FAERS Safety Report 16305861 (Version 1)
Quarter: 2019Q2

REPORT INFORMATION
  Report Type: Spontaneous
  Country: PL (occurrence: PL)
  Receive Date: 20190513
  Receipt Date: 20190513
  Transmission Date: 20190711
  Serious: Yes (Hospitalization)
  Sender: FDA-Public Use
  Company Number: PL-BAXTER-2019BAX009149

PATIENT
  Age: 87 Year
  Sex: Female
  Weight: 67.5 kg

DRUGS (1)
  1. THEOPHYLLINUM BAXTER [Suspect]
     Active Substance: THEOPHYLLINE ANHYDROUS
     Indication: CHRONIC OBSTRUCTIVE PULMONARY DISEASE
     Dosage: 2 X 300 MG
     Route: 042
     Dates: start: 20161212, end: 20161213

REACTIONS (3)
  - Tremor [Unknown]
  - Erythema [Unknown]
  - Vomiting [Unknown]

NARRATIVE: CASE EVENT DATE: 20161213
